FAERS Safety Report 9356710 (Version 2)
Quarter: 2013Q2

REPORT INFORMATION
  Report Type: Spontaneous
  Country: JP (occurrence: JP)
  Receive Date: 20130619
  Receipt Date: 20130627
  Transmission Date: 20140414
  Serious: Yes (Death, Other)
  Sender: FDA-Public Use
  Company Number: PHHY2013JP061040

PATIENT
  Age: 55 Year
  Sex: Female

DRUGS (15)
  1. CICLOSPORIN [Suspect]
     Indication: INTERSTITIAL LUNG DISEASE
     Dosage: 120 MG, DAILY
     Route: 048
  2. SILDENAFIL CITRATE [Suspect]
     Indication: PULMONARY HYPERTENSION
     Dosage: 60 MG, DAILY
     Route: 048
  3. SILDENAFIL CITRATE [Suspect]
     Dosage: 80 MG, DAILY
     Route: 048
  4. SILDENAFIL CITRATE [Suspect]
     Dosage: 80 MG, DAILY
     Route: 048
  5. BOSENTAN [Suspect]
     Indication: PULMONARY ARTERIAL HYPERTENSION
     Dosage: 62.5 MG, PER DAY
  6. BOSENTAN [Suspect]
     Dosage: 250 MG, PER DAY
  7. PREDNISOLONE [Suspect]
     Indication: INTERSTITIAL LUNG DISEASE
     Dosage: 10 MG
     Route: 048
  8. PREDNISOLONE [Suspect]
     Dosage: 17.5 MG, DAILY
     Route: 048
  9. BERAPROST SODIUM [Suspect]
     Indication: PULMONARY HYPERTENSION
     Dosage: 120 UG, DAILY
     Route: 048
  10. BERAPROST SODIUM [Suspect]
     Dosage: 240 UG, DAILY
     Route: 048
  11. BERAPROST SODIUM [Suspect]
     Dosage: 360 UG, DAILY
     Route: 048
  12. BERAPROST SODIUM [Suspect]
     Dosage: 240 UG, DAILY
     Route: 048
  13. CYCLOPHOSPHAMIDE [Concomitant]
  14. NITRIC OXIDE [Concomitant]
     Indication: PULMONARY ARTERIAL HYPERTENSION
  15. METHYLPREDNISOLONE [Concomitant]
     Indication: INTERSTITIAL LUNG DISEASE
     Dosage: 1000 MG, PER DAY

REACTIONS (11)
  - Interstitial lung disease [Fatal]
  - Respiratory failure [Fatal]
  - Dyspnoea [Fatal]
  - Hypoxia [Fatal]
  - Pneumothorax [Unknown]
  - General physical health deterioration [Unknown]
  - Malaise [Unknown]
  - Hot flush [Unknown]
  - Diarrhoea [Unknown]
  - White blood cell count increased [Unknown]
  - Drug ineffective [Unknown]
